FAERS Safety Report 6911232-2 (Version None)
Quarter: 2010Q3

REPORT INFORMATION
  Report Type: 
  Country: None (occurrence: None)
  Receive Date: 20100806
  Receipt Date: 20100726
  Transmission Date: 20110219
  Serious: Yes (Hospitalization)
  Sender: FDA-Public Use
  Company Number: PHHY2010US48799

PATIENT
  Age: 88 Year
  Sex: Male

DRUGS (9)
  1. GLEEVEC [Suspect]
     Indication: CHORDOMA
     Dosage: UNK
     Route: 048
     Dates: start: 20100605, end: 20100623
  2. GLIPIZIDE [Concomitant]
     Indication: DIABETES MELLITUS
     Dosage: 1 UNK, QD
     Route: 048
  3. METOPROLOL [Concomitant]
     Indication: HYPERTENSION
     Dosage: 25 MG, BID
     Route: 048
  4. PLAVIX [Concomitant]
     Dosage: 75 MG, QD
     Route: 048
  5. SIMVASTATIN [Concomitant]
     Indication: HYPERLIPIDAEMIA
     Dosage: 20 MG, QD
     Route: 048
  6. HYOMAX [Concomitant]
     Indication: BLADDER DISORDER
     Dosage: 125 MG, QD
     Route: 048
  7. AZOR [Concomitant]
     Indication: HYPERTENSION
     Dosage: 1 UNK, QD
     Route: 048
  8. GEMFIBROZIL [Concomitant]
     Indication: HYPERLIPIDAEMIA
     Dosage: 600 MG, BID
     Route: 048
  9. DIGOXIN [Concomitant]
     Indication: CORONARY ARTERY DISEASE
     Dosage: 125 MG, QD
     Route: 048

REACTIONS (16)
  - ANAEMIA [None]
  - CLOSTRIDIUM DIFFICILE COLITIS [None]
  - DEHYDRATION [None]
  - DIARRHOEA [None]
  - ELECTROLYTE IMBALANCE [None]
  - FLUID OVERLOAD [None]
  - HYPERKALAEMIA [None]
  - LEUKOPENIA [None]
  - METABOLIC ACIDOSIS [None]
  - METABOLIC ENCEPHALOPATHY [None]
  - OEDEMA [None]
  - PANCYTOPENIA [None]
  - PULMONARY HYPERTENSION [None]
  - RENAL FAILURE ACUTE [None]
  - THROMBOCYTOPENIA [None]
  - UROSEPSIS [None]
